FAERS Safety Report 9079201 (Version 1)
Quarter: 2013Q1

REPORT INFORMATION
  Report Type: Spontaneous
  Country: US (occurrence: US)
  Receive Date: 20130215
  Receipt Date: 20130215
  Transmission Date: 20140127
  Serious: Yes (Hospitalization, Other)
  Sender: FDA-Public Use
  Company Number: US-PFIZER INC-2013056204

PATIENT
  Age: 30 Year
  Sex: Female
  Weight: 72.56 kg

DRUGS (2)
  1. BENEFIX [Suspect]
     Indication: FACTOR IX DEFICIENCY
     Dosage: 110 IU/KG PER WEEK, 2X/WEEK
  2. BENEFIX [Suspect]
     Indication: PROPHYLAXIS

REACTIONS (3)
  - Disease complication [Unknown]
  - Haemorrhage [Unknown]
  - Joint injury [Unknown]
